FAERS Safety Report 6718594-X (Version None)
Quarter: 2010Q2

REPORT INFORMATION
  Report Type: 
  Country: None (occurrence: None)
  Receive Date: 20100510
  Receipt Date: 20100430
  Transmission Date: 20101027
  Serious: Yes (Other)
  Sender: FDA-Public Use
  Company Number: US-AMGEN-QUU409615

PATIENT
  Sex: Male

DRUGS (12)
  1. ENBREL [Suspect]
     Indication: PSORIASIS
     Dates: start: 20000101
  2. SOTALOL HCL [Concomitant]
     Dates: start: 20100420
  3. CELEXA [Concomitant]
  4. NEURONTIN [Concomitant]
  5. RESTORIL [Concomitant]
  6. PROTONIX [Concomitant]
  7. DYAZIDE [Concomitant]
  8. LEVOTHYROXINE SODIUM [Concomitant]
  9. PENTOXIFYLLINE [Concomitant]
  10. VERAPAMIL [Concomitant]
  11. COUMADIN [Concomitant]
  12. ZOCOR [Concomitant]

REACTIONS (5)
  - DYSPNOEA [None]
  - EYE SWELLING [None]
  - GENERALISED OEDEMA [None]
  - LIP SWELLING [None]
  - LOSS OF CONSCIOUSNESS [None]
